FAERS Safety Report 24444918 (Version 1)
Quarter: 2024Q4

REPORT INFORMATION
  Report Type: Spontaneous
  Country: SE (occurrence: SE)
  Receive Date: 20241016
  Receipt Date: 20241016
  Transmission Date: 20250115
  Serious: Yes (Hospitalization, Other)
  Sender: ALEXION PHARMACEUTICALS
  Company Number: SE-AstraZeneca-2017SF13920

PATIENT
  Age: 32 Year
  Weight: 39 kg

DRUGS (13)
  1. QUETIAPINE [Suspect]
     Active Substance: QUETIAPINE
     Indication: Product used for unknown indication
  2. QUETIAPINE [Suspect]
     Active Substance: QUETIAPINE
  3. QUETIAPINE [Suspect]
     Active Substance: QUETIAPINE
  4. QUETIAPINE [Suspect]
     Active Substance: QUETIAPINE
  5. LYRICA [Suspect]
     Active Substance: PREGABALIN
     Indication: Mental disorder
     Dosage: UNK
  6. RITALIN [Suspect]
     Active Substance: METHYLPHENIDATE HYDROCHLORIDE
     Indication: Product used for unknown indication
     Dosage: 140 MILLIGRAM, QD
  7. RITALIN [Suspect]
     Active Substance: METHYLPHENIDATE HYDROCHLORIDE
     Dosage: 140 MILLIGRAM, QD
     Route: 065
  8. VENLAFAXINE HYDROCHLORIDE [Suspect]
     Active Substance: VENLAFAXINE HYDROCHLORIDE
     Indication: Bipolar disorder
     Dosage: UNK
  9. IMOVANE [Suspect]
     Active Substance: ZOPICLONE
     Indication: Product used for unknown indication
     Dosage: 7.5 MILLIGRAM, QD
     Route: 065
  10. IMOVANE [Suspect]
     Active Substance: ZOPICLONE
     Dosage: 7.5 MILLIGRAM, QD
  11. IMOVANE [Suspect]
     Active Substance: ZOPICLONE
     Dosage: 2.5 MILLIGRAM, QD
     Route: 065
  12. IMOVANE [Suspect]
     Active Substance: ZOPICLONE
     Dosage: 2.5 MILLIGRAM, QD
  13. ATARAX [Suspect]
     Active Substance: HYDROXYZINE HYDROCHLORIDE
     Indication: Product used for unknown indication

REACTIONS (40)
  - Depression [Unknown]
  - Nightmare [Unknown]
  - Anxiety [Unknown]
  - Disturbance in attention [Unknown]
  - Tinnitus [Unknown]
  - Libido decreased [Not Recovered/Not Resolved]
  - Weight decreased [Unknown]
  - Rash [Unknown]
  - Scar [Unknown]
  - Cardiovascular disorder [Unknown]
  - Fear [Unknown]
  - Tremor [Unknown]
  - Panic attack [Not Recovered/Not Resolved]
  - Burnout syndrome [Not Recovered/Not Resolved]
  - Dysuria [Not Recovered/Not Resolved]
  - Drug ineffective [Not Recovered/Not Resolved]
  - Cardiac disorder [Not Recovered/Not Resolved]
  - Somnambulism [Recovered/Resolved]
  - Antisocial behaviour [Unknown]
  - Tinnitus [Unknown]
  - Pain in extremity [Unknown]
  - Eating disorder [Not Recovered/Not Resolved]
  - Diplopia [Not Recovered/Not Resolved]
  - Renal disorder [Unknown]
  - Negative thoughts [Recovered/Resolved]
  - Back pain [Not Recovered/Not Resolved]
  - Nausea [Recovered/Resolved]
  - Social anxiety disorder [Not Recovered/Not Resolved]
  - Pelvic inflammatory disease [Not Recovered/Not Resolved]
  - Panic disorder [Unknown]
  - Gastrointestinal disorder [Not Recovered/Not Resolved]
  - Pain [Not Recovered/Not Resolved]
  - Weight decreased [Not Recovered/Not Resolved]
  - Psychiatric symptom [Unknown]
  - Tremor [Unknown]
  - Libido decreased [Not Recovered/Not Resolved]
  - Emotional distress [Unknown]
  - Malaise [Unknown]
  - Arthralgia [Not Recovered/Not Resolved]
  - Coeliac disease [Not Recovered/Not Resolved]
